FAERS Safety Report 8434087 (Version 7)
Quarter: 2014Q3

REPORT INFORMATION
  Report Type: Spontaneous
  Country: US (occurrence: None)
  Receive Date: 20120217
  Receipt Date: 20140717
  Transmission Date: 20150326
  Serious: Yes (Hospitalization, Other)
  Sender: FDA-Public Use
  Company Number: ADR-2011-11695

PATIENT
  Sex: Female

DRUGS (8)
  1. MORPHINE [Suspect]
     Active Substance: MORPHINE
  2. BACLOFEN. [Suspect]
     Active Substance: BACLOFEN
     Indication: PAIN
  3. SALINE [Suspect]
     Active Substance: SODIUM CHLORIDE
  4. BACLOFEN. [Suspect]
     Active Substance: BACLOFEN
  5. MORPHINE [Suspect]
     Active Substance: MORPHINE
  6. BUPIVACAINE [Suspect]
     Active Substance: BUPIVACAINE
  7. FENTANYL. [Suspect]
     Active Substance: FENTANYL
  8. DILAUDID [Suspect]
     Active Substance: HYDROMORPHONE HYDROCHLORIDE

REACTIONS (36)
  - Implant site pain [None]
  - Spinal disorder [None]
  - Infusion [None]
  - Therapeutic response changed [None]
  - Amnesia [None]
  - Spinal fracture [None]
  - Pain in extremity [None]
  - Asthma [None]
  - Sensory loss [None]
  - Gastritis [None]
  - Brain injury [None]
  - Bladder disorder [None]
  - Constipation [None]
  - Fall [None]
  - Device ineffective [None]
  - Implant site infection [None]
  - Sleep apnoea syndrome [None]
  - Overdose [None]
  - Multiple injuries [None]
  - Suture related complication [None]
  - Abdominal pain [None]
  - Pain [None]
  - Road traffic accident [None]
  - Paralysis [None]
  - Infusion site mass [None]
  - Drug withdrawal syndrome [None]
  - Device dislocation [None]
  - Inflammation [None]
  - Muscle spasms [None]
  - Intervertebral disc protrusion [None]
  - Adverse event [None]
  - Back pain [None]
  - Hypoaesthesia [None]
  - Gastrointestinal disorder [None]
  - Peroneal nerve palsy [None]
  - Medical device discomfort [None]
